FAERS Safety Report 8137441-5 (Version None)
Quarter: 2012Q1

REPORT INFORMATION
  Report Type: 
  Country: None (occurrence: None)
  Receive Date: 20120103
  Receipt Date: 20110907
  Transmission Date: 20120608
  Serious: No
  Sender: FDA-Public Use
  Company Number: AE-2011-001378

PATIENT
  Age: 58 Year
  Sex: Female

DRUGS (7)
  1. PEGASYS [Concomitant]
  2. LANTUS [Concomitant]
  3. HUMALOG INSULIN (INSULIN LISPRO) [Concomitant]
  4. INCIVEK [Suspect]
     Dosage: 2250 MG (750 MG, 1 IN 8 HR), ORAL
     Route: 048
     Dates: start: 20110902
  5. RIBAPAK (RIBAVIRIN) [Concomitant]
  6. LISINOPRIL [Concomitant]
  7. METOPROLOL TARTRATE [Concomitant]

REACTIONS (1)
  - NAUSEA [None]
